FAERS Safety Report 5121757-0 (Version None)
Quarter: 2006Q4

REPORT INFORMATION
  Report Type: 
  Country: None (occurrence: None)
  Receive Date: 20061003
  Receipt Date: 20060919
  Transmission Date: 20070319
  Serious: Yes (Life-Threatening)
  Sender: FDA-Public Use
  Company Number: OMPQ-NO-0607S-1232

PATIENT
  Age: 80 Year
  Sex: Male

DRUGS (5)
  1. OMNIPAQUE 240 [Suspect]
     Indication: NASAL CAVITY CANCER
     Dosage: 80 ML, SINGLE DOSE, I.V.
     Route: 042
     Dates: start: 20060718, end: 20060718
  2. ENALAPRIL MALEATE [Concomitant]
  3. INDERAL [Concomitant]
  4. IFENPRODIL TARTRATE (CEROCRAL) [Concomitant]
  5. ADALAT [Concomitant]

REACTIONS (9)
  - BLOOD PRESSURE DECREASED [None]
  - CEREBRAL INFARCTION [None]
  - DEPRESSED LEVEL OF CONSCIOUSNESS [None]
  - ELECTROMECHANICAL DISSOCIATION [None]
  - INTESTINAL ISCHAEMIA [None]
  - MELAENA [None]
  - OXYGEN SATURATION DECREASED [None]
  - RESPIRATORY ARREST [None]
  - SHOCK [None]
